FAERS Safety Report 17062592 (Version 1)
Quarter: 2019Q4

REPORT INFORMATION
  Report Type: Spontaneous
  Country: US (occurrence: US)
  Receive Date: 20191122
  Receipt Date: 20191122
  Transmission Date: 20200122
  Serious: No
  Sender: FDA-Public Use
  Company Number: US-APOTEX-2019AP024818

PATIENT
  Sex: Female
  Weight: 54.43 kg

DRUGS (1)
  1. ATORVASTATIN CALCIUM. [Suspect]
     Active Substance: ATORVASTATIN CALCIUM
     Indication: PRODUCT USED FOR UNKNOWN INDICATION
     Dosage: 20 MG, Q.H.S.
     Route: 048
     Dates: start: 201810

REACTIONS (5)
  - Onychoclasis [Not Recovered/Not Resolved]
  - Cardiac disorder [Unknown]
  - Product label issue [Unknown]
  - Emotional disorder [Not Recovered/Not Resolved]
  - Alopecia [Not Recovered/Not Resolved]
